FAERS Safety Report 15949557 (Version 1)
Quarter: 2019Q1

REPORT INFORMATION
  Report Type: Spontaneous
  Country: US (occurrence: US)
  Receive Date: 20190211
  Receipt Date: 20190211
  Transmission Date: 20190417
  Serious: No
  Sender: FDA-Public Use
  Company Number: None

PATIENT
  Age: 48 Year
  Sex: Male
  Weight: 96.62 kg

DRUGS (1)
  1. PROPRIETARY HEMP EXTRACT 24% [Suspect]
     Active Substance: HEMP
     Indication: MAJOR DEPRESSION

REACTIONS (2)
  - Drug interaction [None]
  - Depressive symptom [None]

NARRATIVE: CASE EVENT DATE: 20190127
